FAERS Safety Report 23265998 (Version 1)
Quarter: 2023Q4

REPORT INFORMATION
  Report Type: Spontaneous
  Country: IT (occurrence: IT)
  Receive Date: 20231206
  Receipt Date: 20231206
  Transmission Date: 20240110
  Serious: Yes (Death, Other)
  Sender: FDA-Public Use
  Company Number: IT-AMGEN-ITASP2023212205

PATIENT

DRUGS (3)
  1. EPOETIN ALFA [Suspect]
     Active Substance: ERYTHROPOIETIN
     Indication: Product used for unknown indication
     Route: 065
  2. DANAZOL [Suspect]
     Active Substance: DANAZOL
     Indication: Myelodysplastic syndrome
     Route: 065
  3. DANAZOL [Suspect]
     Active Substance: DANAZOL
     Indication: Myeloproliferative neoplasm

REACTIONS (5)
  - Death [Fatal]
  - Hypertransaminasaemia [Unknown]
  - Affective disorder [Unknown]
  - Blood creatinine increased [Unknown]
  - Thrombocytopenia [Unknown]
